FAERS Safety Report 8722592 (Version 2)
Quarter: 2012Q4

REPORT INFORMATION
  Report Type: 
  Country: CN (occurrence: CN)
  Receive Date: 20120814
  Receipt Date: 20121218
  Transmission Date: 20130627
  Serious: Yes (Death, Other)
  Sender: FDA-Public Use
  Company Number: CN-ROCHE-1100416

PATIENT
  Age: 58 Year
  Sex: Female

DRUGS (1)
  1. XELODA [Suspect]
     Indication: BREAST CANCER
     Route: 048

REACTIONS (3)
  - Pulmonary haemorrhage [Fatal]
  - Pulmonary necrosis [Fatal]
  - White blood cell count decreased [Unknown]
